FAERS Safety Report 4398483-9 (Version None)
Quarter: 2004Q3

REPORT INFORMATION
  Report Type: 
  Country: None (occurrence: None)
  Receive Date: 20040714
  Receipt Date: 20040714
  Transmission Date: 20050211
  Serious: Yes (Hospitalization)
  Sender: FDA-Public Use
  Company Number: None

PATIENT
  Age: 86 Year
  Sex: Female
  Weight: 68.0396 kg

DRUGS (12)
  1. WARFARIN SODIUM [Suspect]
     Indication: ATRIAL FIBRILLATION
     Dosage: 5 MG PO QHS
     Route: 048
     Dates: start: 20040204
  2. WARFARIN SODIUM [Suspect]
     Indication: CEREBROVASCULAR ACCIDENT
     Dosage: 5 MG PO QHS
     Route: 048
     Dates: start: 20040204
  3. PROZAC [Concomitant]
  4. TOPRIL XL [Concomitant]
  5. FLOVENT [Concomitant]
  6. AMBIEN [Concomitant]
  7. SPIRONOLACTONE [Concomitant]
  8. SYNTHROID [Concomitant]
  9. DARVOCET [Concomitant]
  10. MECLIZINE [Concomitant]
  11. PREVACID [Concomitant]
  12. ZYRTEC-D 12 HOUR [Concomitant]

REACTIONS (5)
  - ABASIA [None]
  - ARTHRALGIA [None]
  - INTERNATIONAL NORMALISED RATIO INCREASED [None]
  - PAIN IN EXTREMITY [None]
  - RETROPERITONEAL HAEMORRHAGE [None]
